FAERS Safety Report 9121026 (Version 2)
Quarter: 2013Q1

REPORT INFORMATION
  Report Type: Spontaneous
  Country: GB (occurrence: GB)
  Receive Date: 20130226
  Receipt Date: 20130308
  Transmission Date: 20140127
  Serious: Yes (Other)
  Sender: FDA-Public Use
  Company Number: GB-TEVA-387920ISR

PATIENT
  Age: 2 Decade
  Sex: Female

DRUGS (1)
  1. SERTRALINE [Suspect]
     Indication: DEPRESSION
     Dosage: 100 MILLIGRAM DAILY; TAB
     Route: 048

REACTIONS (2)
  - Abortion spontaneous [Unknown]
  - Pregnancy [Unknown]
